FAERS Safety Report 6508671-0 (Version None)
Quarter: 2009Q4

REPORT INFORMATION
  Report Type: 
  Country: None (occurrence: None)
  Receive Date: 20091221
  Receipt Date: 20090721
  Transmission Date: 20100525
  Serious: No
  Sender: FDA-Public Use
  Company Number: US-ASTRAZENECA-2009SE05443

PATIENT
  Age: 14416 Day
  Sex: Female

DRUGS (4)
  1. CRESTOR [Suspect]
     Indication: BLOOD CHOLESTEROL INCREASED
     Route: 048
     Dates: start: 20090429, end: 20090525
  2. TRICOR [Suspect]
     Indication: BLOOD CHOLESTEROL INCREASED
     Route: 065
     Dates: start: 20090429
  3. NIASPAN [Suspect]
     Indication: BLOOD CHOLESTEROL INCREASED
     Route: 048
     Dates: start: 20090525
  4. FLEXERIL [Concomitant]

REACTIONS (4)
  - CONSTIPATION [None]
  - ERYTHEMA [None]
  - PARAESTHESIA [None]
  - SKIN BURNING SENSATION [None]
